FAERS Safety Report 11636208 (Version 2)
Quarter: 2015Q4

REPORT INFORMATION
  Report Type: Spontaneous
  Country: US (occurrence: US)
  Receive Date: 20151016
  Receipt Date: 20151204
  Transmission Date: 20160304
  Serious: Yes (Hospitalization, Other)
  Sender: FDA-Public Use
  Company Number: US-BAYER-2015-443780

PATIENT
  Age: 22 Year
  Sex: Female
  Weight: 117.91 kg

DRUGS (2)
  1. MIRENA [Suspect]
     Active Substance: LEVONORGESTREL
     Indication: CONTRACEPTION
     Dosage: 20 MCG/24HR, CONT
     Route: 015
     Dates: start: 20120522, end: 20130426
  2. SEROQUEL [Concomitant]
     Active Substance: QUETIAPINE FUMARATE
     Indication: BIPOLAR DISORDER
     Dosage: UNK
     Dates: start: 2006, end: 2013

REACTIONS (17)
  - Photophobia [None]
  - Migraine [None]
  - Loss of consciousness [None]
  - Visual impairment [None]
  - Tinnitus [None]
  - Tunnel vision [None]
  - Benign intracranial hypertension [None]
  - Papilloedema [None]
  - Pregnancy with contraceptive device [None]
  - Injury [None]
  - Vision blurred [None]
  - Musculoskeletal discomfort [None]
  - Abortion spontaneous [None]
  - Drug ineffective [None]
  - Headache [None]
  - Balance disorder [None]
  - Visual field defect [None]

NARRATIVE: CASE EVENT DATE: 2012
